FAERS Safety Report 4876033-8 (Version None)
Quarter: 2005Q4

REPORT INFORMATION
  Report Type: 
  Country: None (occurrence: None)
  Receive Date: 20051206
  Receipt Date: 20051027
  Transmission Date: 20060501
  Serious: No
  Sender: FDA-Public Use
  Company Number: USA0510111979

PATIENT
  Age: 44 Year
  Sex: Male

DRUGS (5)
  1. CYMBALTA [Suspect]
     Indication: SUICIDAL IDEATION
     Dosage: 60 MG DAY
     Dates: start: 20050720
  2. XANAX [Concomitant]
  3. SUDAFED 12 HOUR [Concomitant]
  4. BENADRYL [Concomitant]
  5. VICODIN [Concomitant]

REACTIONS (1)
  - DRUG SCREEN POSITIVE [None]
